FAERS Safety Report 7355835-2 (Version None)
Quarter: 2011Q1

REPORT INFORMATION
  Report Type: 
  Country: None (occurrence: None)
  Receive Date: 20110316
  Receipt Date: 20110314
  Transmission Date: 20110831
  Serious: Yes (Other)
  Sender: FDA-Public Use
  Company Number: US-PFIZER INC-2011036655

PATIENT
  Sex: Male

DRUGS (1)
  1. CHANTIX [Suspect]
     Dosage: UNK

REACTIONS (6)
  - OROPHARYNGEAL BLISTERING [None]
  - PRURITUS [None]
  - PIGMENTATION DISORDER [None]
  - TONGUE BLISTERING [None]
  - ORAL PAIN [None]
  - RASH [None]
